FAERS Safety Report 18757628 (Version 2)
Quarter: 2021Q1

REPORT INFORMATION
  Report Type: Spontaneous
  Country: CN (occurrence: CN)
  Receive Date: 20210119
  Receipt Date: 20210120
  Transmission Date: 20210419
  Serious: No
  Sender: FDA-Public Use
  Company Number: CN-PFIZER INC-2021013433

PATIENT
  Age: 7 Month
  Sex: Male

DRUGS (8)
  1. AZITHROMYCIN ANHYDROUS. [Suspect]
     Active Substance: AZITHROMYCIN ANHYDROUS
     Indication: LUNG DISORDER
     Dosage: UNK
  2. MEROPENEM. [Suspect]
     Active Substance: MEROPENEM
     Indication: CYTOMEGALOVIRUS INFECTION
  3. VORICONAZOLE. [Suspect]
     Active Substance: VORICONAZOLE
     Indication: CYTOMEGALOVIRUS INFECTION
  4. GANCICLOVIR. [Suspect]
     Active Substance: GANCICLOVIR
     Indication: LUNG DISORDER
     Dosage: UNK
  5. AZITHROMYCIN ANHYDROUS. [Suspect]
     Active Substance: AZITHROMYCIN ANHYDROUS
     Indication: CYTOMEGALOVIRUS INFECTION
  6. MEROPENEM. [Suspect]
     Active Substance: MEROPENEM
     Indication: LUNG DISORDER
     Dosage: UNK
  7. VORICONAZOLE. [Suspect]
     Active Substance: VORICONAZOLE
     Indication: LUNG DISORDER
     Dosage: UNK (INJECTION)
  8. GANCICLOVIR. [Suspect]
     Active Substance: GANCICLOVIR
     Indication: CYTOMEGALOVIRUS INFECTION

REACTIONS (1)
  - Off label use [Unknown]
